FAERS Safety Report 14193456 (Version 1)
Quarter: 2017Q4

REPORT INFORMATION
  Report Type: Spontaneous
  Country: US (occurrence: US)
  Receive Date: 20171115
  Receipt Date: 20171115
  Transmission Date: 20180321
  Serious: No
  Sender: FDA-Public Use
  Company Number: US-BAUSCH-BL-2016-031596

PATIENT
  Age: 74 Year
  Sex: Female

DRUGS (4)
  1. XENAZINE [Suspect]
     Active Substance: TETRABENAZINE
     Indication: DYSKINESIA
     Route: 048
     Dates: start: 20160330
  2. AZITHROMYCIN ANHYDROUS. [Suspect]
     Active Substance: AZITHROMYCIN ANHYDROUS
     Indication: PRODUCT USED FOR UNKNOWN INDICATION
     Route: 065
     Dates: start: 20161207
  3. XENAZINE [Suspect]
     Active Substance: TETRABENAZINE
     Indication: EARLY ONSET PRIMARY DYSTONIA
     Route: 048
     Dates: start: 20150401
  4. RIFAMPIN. [Suspect]
     Active Substance: RIFAMPIN
     Indication: PRODUCT USED FOR UNKNOWN INDICATION
     Route: 065
     Dates: start: 201701

REACTIONS (4)
  - Off label use [Unknown]
  - Fatigue [Unknown]
  - Dyskinesia [Unknown]
  - Agitation [Unknown]

NARRATIVE: CASE EVENT DATE: 20150401
